FAERS Safety Report 23714827 (Version 1)
Quarter: 2024Q2

REPORT INFORMATION
  Report Type: Report from Study
  Country: US (occurrence: US)
  Receive Date: 20240406
  Receipt Date: 20240406
  Transmission Date: 20240715
  Serious: Yes (Other)
  Sender: FDA-Public Use
  Company Number: US-ABBVIE-5706411

PATIENT
  Sex: Male

DRUGS (1)
  1. SKYRIZI [Suspect]
     Active Substance: RISANKIZUMAB-RZAA
     Indication: Psoriasis
     Route: 058
     Dates: start: 20211129, end: 202305

REACTIONS (3)
  - Implantable defibrillator insertion [Not Recovered/Not Resolved]
  - Chest pain [Unknown]
  - Psoriasis [Not Recovered/Not Resolved]
